FAERS Safety Report 19937479 (Version 4)
Quarter: 2022Q2

REPORT INFORMATION
  Report Type: Other
  Country: US (occurrence: US)
  Receive Date: 20211011
  Receipt Date: 20220524
  Transmission Date: 20220721
  Serious: Yes (Other)
  Sender: FDA-Public Use
  Company Number: US-INTERCEPT-PM2021001987

PATIENT
  Sex: Female

DRUGS (1)
  1. OCALIVA [Suspect]
     Active Substance: OBETICHOLIC ACID
     Indication: Primary biliary cholangitis
     Dosage: 5 MILLIGRAM, QD
     Route: 048
     Dates: start: 20210504

REACTIONS (17)
  - Macular degeneration [Not Recovered/Not Resolved]
  - Sensitive skin [Not Recovered/Not Resolved]
  - Nausea [Not Recovered/Not Resolved]
  - Back pain [Not Recovered/Not Resolved]
  - Musculoskeletal stiffness [Unknown]
  - Alopecia [Not Recovered/Not Resolved]
  - Blood cholesterol abnormal [Recovering/Resolving]
  - Blood pressure abnormal [Recovering/Resolving]
  - Unevaluable event [Unknown]
  - Abdominal distension [Unknown]
  - Constipation [Not Recovered/Not Resolved]
  - Peripheral swelling [Unknown]
  - Abdominal pain [Not Recovered/Not Resolved]
  - Arthralgia [Not Recovered/Not Resolved]
  - Fatigue [Not Recovered/Not Resolved]
  - Pruritus [Not Recovered/Not Resolved]
  - Product dose omission issue [Recovered/Resolved]

NARRATIVE: CASE EVENT DATE: 20210101
